FAERS Safety Report 21028826 (Version 1)
Quarter: 2022Q2

REPORT INFORMATION
  Report Type: Spontaneous
  Country: US (occurrence: US)
  Receive Date: 20220630
  Receipt Date: 20220630
  Transmission Date: 20220720
  Serious: Yes (Hospitalization)
  Sender: FDA-Public Use
  Company Number: US-BRISTOL-MYERS SQUIBB COMPANY-2022-061715

PATIENT
  Age: 64 Year
  Sex: Male
  Weight: 66.2 kg

DRUGS (1)
  1. POMALYST [Suspect]
     Active Substance: POMALIDOMIDE
     Indication: Plasma cell myeloma
     Dosage: 2 WEEKS ON AND 2 WEEKS OFF
     Route: 048
     Dates: start: 20220101

REACTIONS (2)
  - Hospitalisation [Unknown]
  - Off label use [Unknown]
